FAERS Safety Report 9068421 (Version 2)
Quarter: 2013Q2

REPORT INFORMATION
  Report Type: Spontaneous
  Country: US (occurrence: US)
  Receive Date: 20130206
  Receipt Date: 20130621
  Transmission Date: 20140414
  Serious: No
  Sender: FDA-Public Use
  Company Number: US-009507513-1302USA000856

PATIENT
  Sex: Female
  Weight: 66.67 kg

DRUGS (4)
  1. CLARITIN [Suspect]
     Indication: RHINORRHOEA
     Dosage: 10 MG, QD
     Route: 048
     Dates: start: 2013, end: 2013
  2. LESCOL [Concomitant]
     Indication: BLOOD CHOLESTEROL INCREASED
  3. LISINOPRIL [Concomitant]
     Indication: HYPERTENSION
  4. SULFASALAZINE [Concomitant]
     Indication: COLITIS ULCERATIVE

REACTIONS (1)
  - Epistaxis [Recovered/Resolved]
